FAERS Safety Report 9240084 (Version 1)
Quarter: 2013Q2

REPORT INFORMATION
  Report Type: Spontaneous
  Country: US (occurrence: US)
  Receive Date: 20130418
  Receipt Date: 20130418
  Transmission Date: 20140414
  Serious: Yes (Hospitalization)
  Sender: FDA-Public Use
  Company Number: US-BRISTOL-MYERS SQUIBB COMPANY-18772913

PATIENT
  Age: 44 Year
  Sex: Male

DRUGS (6)
  1. REYATAZ CAPS 300 MG [Suspect]
  2. RITONAVIR [Concomitant]
  3. TENOFOVIR [Concomitant]
  4. EMTRICITABINE [Concomitant]
     Dosage: 1 DF: 100MG/ML SOLN
  5. PHENYTOIN [Concomitant]
  6. BACTRIM [Concomitant]

REACTIONS (2)
  - Adverse event [Unknown]
  - Dysphagia [Unknown]
